FAERS Safety Report 18957707 (Version 1)
Quarter: 2021Q1

REPORT INFORMATION
  Report Type: Spontaneous
  Country: US (occurrence: US)
  Receive Date: 20210302
  Receipt Date: 20210302
  Transmission Date: 20210420
  Serious: Yes (Hospitalization)
  Sender: FDA-Public Use
  Company Number: US-PFIZER INC-2021208658

PATIENT
  Age: 50 Year
  Sex: Female

DRUGS (12)
  1. DECADRON [Concomitant]
     Active Substance: DEXAMETHASONE
     Indication: INTRACRANIAL ANEURYSM
     Dosage: UNK
  2. TYLENOL [Concomitant]
     Active Substance: ACETAMINOPHEN
     Dosage: UNK
  3. PITRESSIN TANNATE OIL [Concomitant]
     Indication: CONFUSIONAL STATE
  4. MYSOLINE [Concomitant]
     Active Substance: PRIMIDONE
     Indication: POLYDIPSIA
  5. VALIUM [Concomitant]
     Active Substance: DIAZEPAM
     Dosage: UNK
  6. THORAZINE [Concomitant]
     Active Substance: CHLORPROMAZINE
     Indication: INTRACRANIAL ANEURYSM
     Dosage: UNK
  7. PITRESSIN TANNATE OIL [Concomitant]
     Indication: POLYDIPSIA
  8. KEFLEX [Concomitant]
     Active Substance: CEPHALEXIN
     Indication: INTRACRANIAL ANEURYSM
     Dosage: UNK
  9. MYSOLINE [Concomitant]
     Active Substance: PRIMIDONE
     Indication: POLYURIA
     Dosage: 500 MG, DAILY
  10. DILANTIN [Suspect]
     Active Substance: PHENYTOIN
     Indication: INTRACRANIAL ANEURYSM
     Dosage: 300 MG, DAILY
     Dates: start: 19730828, end: 19730917
  11. PITRESSIN TANNATE OIL [Concomitant]
     Indication: POLYURIA
     Dosage: UNK
  12. MYSOLINE [Concomitant]
     Active Substance: PRIMIDONE
     Indication: CONFUSIONAL STATE

REACTIONS (1)
  - Aplasia pure red cell [Recovered/Resolved]

NARRATIVE: CASE EVENT DATE: 1973
